FAERS Safety Report 22589827 (Version 1)
Quarter: 2023Q2

REPORT INFORMATION
  Report Type: Spontaneous
  Country: DE (occurrence: DE)
  Receive Date: 20230612
  Receipt Date: 20230612
  Transmission Date: 20230721
  Serious: Yes (Hospitalization)
  Sender: FDA-Public Use
  Company Number: None

PATIENT
  Age: 83 Year
  Sex: Male
  Weight: 99 kg

DRUGS (7)
  1. FEBUXOSTAT [Suspect]
     Active Substance: FEBUXOSTAT
     Indication: Gout
     Dosage: UNK
     Route: 048
  2. CANDESARTAN [Suspect]
     Active Substance: CANDESARTAN
     Indication: Hypertension
     Dosage: UNK
     Route: 048
     Dates: start: 20220105
  3. TORSEMIDE [Suspect]
     Active Substance: TORSEMIDE
     Indication: Hypertension
     Dosage: UNK
     Route: 048
     Dates: start: 20210706
  4. LEVOTHYROXINE SODIUM [Suspect]
     Active Substance: LEVOTHYROXINE SODIUM
     Indication: Hypothyroidism
     Dosage: UNK
     Route: 048
     Dates: start: 20210706
  5. FILGOTINIB [Suspect]
     Active Substance: FILGOTINIB
     Indication: Rheumatoid arthritis
     Dosage: 100 MILLIGRAM,QD
     Route: 048
     Dates: start: 20211213, end: 20220125
  6. EDOXABAN TOSYLATE [Suspect]
     Active Substance: EDOXABAN TOSYLATE
     Indication: Anticoagulant therapy
     Dosage: UNK
     Route: 048
     Dates: start: 20220105
  7. VITAMIN D3 [Suspect]
     Active Substance: CHOLECALCIFEROL
     Indication: Rheumatic disorder
     Dosage: UNK
     Route: 048
     Dates: start: 20210706

REACTIONS (4)
  - Anaemia [Recovered/Resolved]
  - Iron deficiency [Unknown]
  - Glomerular filtration rate decreased [Unknown]
  - Blood creatinine increased [Recovering/Resolving]
